APPROVED DRUG PRODUCT: AMANTADINE HYDROCHLORIDE
Active Ingredient: AMANTADINE HYDROCHLORIDE
Strength: 50MG/5ML
Dosage Form/Route: SYRUP;ORAL
Application: A076352 | Product #001
Applicant: CHARTWELL RX SCIENCES LLC
Approved: Sep 10, 2004 | RLD: No | RS: No | Type: DISCN